FAERS Safety Report 4377777-7 (Version None)
Quarter: 2004Q2

REPORT INFORMATION
  Report Type: 
  Country: None (occurrence: None)
  Receive Date: 20040615
  Receipt Date: 20040615
  Transmission Date: 20050107
  Serious: Yes (Hospitalization)
  Sender: FDA-Public Use
  Company Number: None

PATIENT
  Sex: Female
  Weight: 110 kg

DRUGS (3)
  1. FLUDARABINE PHOSPHATE [Suspect]
     Indication: ACUTE MYELOID LEUKAEMIA
     Dosage: 77 MG IV
     Route: 042
     Dates: start: 20040318, end: 20040322
  2. MELPHALAN [Suspect]
     Dosage: 320 MG IV
     Route: 042
     Dates: start: 20040319, end: 20040319
  3. CAMPATH [Concomitant]

REACTIONS (2)
  - CATHETER RELATED INFECTION [None]
  - STAPHYLOCOCCAL INFECTION [None]
